FAERS Safety Report 5611266-4 (Version None)
Quarter: 2008Q1

REPORT INFORMATION
  Report Type: 
  Country: None (occurrence: None)
  Receive Date: 20080201
  Receipt Date: 20080128
  Transmission Date: 20080703
  Serious: Yes (Hospitalization)
  Sender: FDA-Public Use
  Company Number: US-BAXTER-2008BH000841

PATIENT
  Age: 78 Year
  Sex: Female

DRUGS (3)
  1. HEPARIN SODIUM 1,000 UNITS IN DEXTROSE 5% [Suspect]
     Indication: ANTICOAGULANT THERAPY
     Route: 042
     Dates: start: 20080103, end: 20080104
  2. HEPARIN SODIUM 1,000 UNITS IN DEXTROSE 5% [Suspect]
     Route: 042
     Dates: start: 20080104, end: 20080104
  3. COUMADIN [Concomitant]
     Indication: ANTICOAGULANT THERAPY
     Route: 048
     Dates: end: 20080101

REACTIONS (6)
  - ACCIDENTAL OVERDOSE [None]
  - ACTIVATED PARTIAL THROMBOPLASTIN TIME PROLONGED [None]
  - BLOOD PRESSURE DECREASED [None]
  - DEVICE MALFUNCTION [None]
  - HEPARIN-INDUCED THROMBOCYTOPENIA [None]
  - RETROPERITONEAL HAEMORRHAGE [None]
